FAERS Safety Report 24153550 (Version 1)
Quarter: 2024Q3

REPORT INFORMATION
  Report Type: Spontaneous
  Country: US (occurrence: None)
  Receive Date: 20240730
  Receipt Date: 20240730
  Transmission Date: 20241017
  Serious: Yes (Other)
  Sender: Public
  Company Number: None

PATIENT
  Age: 73 Year
  Sex: Female
  Weight: 53.1 kg

DRUGS (9)
  1. QUETIAPINE [Suspect]
     Active Substance: QUETIAPINE
     Indication: Sleep disorder
     Dosage: 60 TABLETS RWICE A DAY ORAL?
     Route: 048
     Dates: start: 20240101
  2. PENTASA [Concomitant]
     Active Substance: MESALAMINE
  3. GABAPENTIN [Concomitant]
     Active Substance: GABAPENTIN
  4. GUMMY [Concomitant]
  5. TINCTURE [Concomitant]
  6. VITAMINS [Concomitant]
     Active Substance: VITAMINS
  7. TUMS [Concomitant]
     Active Substance: CALCIUM CARBONATE
  8. ZINC [Concomitant]
     Active Substance: ZINC
  9. HERBALS\TURMERIC [Concomitant]
     Active Substance: HERBALS\TURMERIC

REACTIONS (1)
  - Weight increased [None]

NARRATIVE: CASE EVENT DATE: 20240528
